FAERS Safety Report 8341223 (Version 2)
Quarter: 2013Q3

REPORT INFORMATION
  Report Type: Spontaneous
  Country: FR (occurrence: FR)
  Receive Date: 20120118
  Receipt Date: 20130712
  Transmission Date: 20140515
  Serious: Yes (Hospitalization)
  Sender: FDA-Public Use
  Company Number: FR-ELI_LILLY_AND_COMPANY-FR201201002176

PATIENT
  Age: 60 Year
  Sex: Female

DRUGS (9)
  1. CYMBALTA [Suspect]
     Indication: DEPRESSION
     Dosage: 60 MG, QD
     Route: 048
     Dates: start: 20111107, end: 20111208
  2. NOROXINE [Concomitant]
     Indication: CYSTITIS
     Dosage: 800 MG, QD
     Route: 048
     Dates: start: 20111122, end: 20111130
  3. CORTANCYL [Concomitant]
  4. COVERSYL [Concomitant]
  5. ISOPTINE [Concomitant]
  6. KARDEGIC [Concomitant]
  7. LYSANXIA [Concomitant]
  8. PARIET [Concomitant]
  9. SIMVASTATINE [Concomitant]

REACTIONS (2)
  - Rash papular [Recovered/Resolved]
  - Pruritus [Recovered/Resolved]
